FAERS Safety Report 12742568 (Version 6)
Quarter: 2017Q1

REPORT INFORMATION
  Report Type: Report from Study
  Country: DE (occurrence: DE)
  Receive Date: 20160914
  Receipt Date: 20170321
  Transmission Date: 20170428
  Serious: Yes (Hospitalization)
  Sender: FDA-Public Use
  Company Number: DE-ASTELLAS-2016US034965

PATIENT
  Age: 40 Year
  Sex: Female

DRUGS (8)
  1. TACROLIMUS. [Suspect]
     Active Substance: TACROLIMUS
     Dosage: 9 MG (1X9 MG), ONCE DAILY
     Route: 048
     Dates: start: 20160805, end: 20160806
  2. TACROLIMUS. [Suspect]
     Active Substance: TACROLIMUS
     Dosage: 10 MG (1X10 MG), ONCE DAILY
     Route: 048
     Dates: start: 20160807, end: 20160809
  3. TACROLIMUS. [Suspect]
     Active Substance: TACROLIMUS
     Dosage: 9.5 MG (1X9.5 MG), ONCE DAILY
     Route: 048
     Dates: start: 20160813, end: 20160814
  4. TACROLIMUS. [Suspect]
     Active Substance: TACROLIMUS
     Dosage: 8 MG (1X8 MG), ONCE DAILY
     Route: 048
     Dates: start: 20160810, end: 20160812
  5. TACROLIMUS. [Suspect]
     Active Substance: TACROLIMUS
     Indication: RENAL TRANSPLANT
     Dosage: 5 MG (1X5MG), ONCE DAILY
     Route: 048
     Dates: start: 20160725, end: 20160804
  6. TACROLIMUS. [Suspect]
     Active Substance: TACROLIMUS
     Dosage: 12 MG (1X12 MG), ONCE DAILY
     Route: 048
     Dates: start: 20160815, end: 20160903
  7. TACROLIMUS. [Suspect]
     Active Substance: TACROLIMUS
     Dosage: 11 MG (1X11MG), ONCE DAILY
     Route: 048
     Dates: start: 20161006, end: 20161031
  8. TACROLIMUS. [Suspect]
     Active Substance: TACROLIMUS
     Dosage: 10 MG (1X10MG), ONCE DAILY
     Route: 048
     Dates: start: 20160904, end: 20161005

REACTIONS (2)
  - Complications of transplanted kidney [Recovered/Resolved]
  - Kidney transplant rejection [Recovered/Resolved]

NARRATIVE: CASE EVENT DATE: 20160801
